FAERS Safety Report 17657109 (Version 1)
Quarter: 2020Q2

REPORT INFORMATION
  Report Type: Spontaneous
  Country: US (occurrence: US)
  Receive Date: 20200410
  Receipt Date: 20200410
  Transmission Date: 20200713
  Serious: No
  Sender: FDA-Public Use
  Company Number: US-TEVA-2020-US-1220127

PATIENT
  Age: 61 Year
  Sex: Female

DRUGS (2)
  1. DIAZEPAM TEVA [Suspect]
     Active Substance: DIAZEPAM
     Indication: PAIN
  2. DIAZEPAM TEVA [Suspect]
     Active Substance: DIAZEPAM
     Indication: ANXIETY
     Dosage: AS NEEDED
     Route: 065

REACTIONS (3)
  - Balance disorder [Unknown]
  - Dizziness [Unknown]
  - Product use in unapproved indication [Unknown]
